FAERS Safety Report 10379199 (Version 2)
Quarter: 2014Q3

REPORT INFORMATION
  Report Type: Spontaneous
  Country: ZA (occurrence: ZA)
  Receive Date: 20140812
  Receipt Date: 20140919
  Transmission Date: 20150326
  Serious: Yes (Other)
  Sender: FDA-Public Use
  Company Number: ZA-GLAXOSMITHKLINE-B1022456A

PATIENT
  Sex: Female
  Weight: 63 kg

DRUGS (4)
  1. VIGAMOX [Concomitant]
     Active Substance: MOXIFLOXACIN HYDROCHLORIDE
     Dates: start: 20140729
  2. ACICLOVIR [Concomitant]
     Active Substance: ACYCLOVIR
     Dates: start: 20140718
  3. ZOVIRAX [Suspect]
     Active Substance: ACYCLOVIR
     Indication: OPHTHALMIC HERPES SIMPLEX
     Route: 047
     Dates: start: 20140805
  4. ZOVIRAX [Suspect]
     Active Substance: ACYCLOVIR
     Indication: HERPES SIMPLEX
     Route: 047
     Dates: start: 20140715

REACTIONS (2)
  - Eye pain [Unknown]
  - Eye irritation [Unknown]
